FAERS Safety Report 8791883 (Version 1)
Quarter: 2012Q4

REPORT INFORMATION
  Report Type: 
  Country: US (occurrence: US)
  Receive Date: 20120918
  Receipt Date: 20120918
  Transmission Date: 20130627
  Serious: Yes (Hospitalization, Other)
  Sender: FDA-Public Use
  Company Number: US-ELI_LILLY_AND_COMPANY-US201209004112

PATIENT
  Age: 45 Year
  Sex: Female

DRUGS (3)
  1. GEMCITABINE HYDROCHLORIDE [Suspect]
     Indication: BILE DUCT CANCER NON-RESECTABLE
  2. AVASTIN [Concomitant]
     Indication: BILE DUCT CANCER NON-RESECTABLE
  3. OXALIPLATIN [Concomitant]
     Indication: BILE DUCT CANCER NON-RESECTABLE

REACTIONS (1)
  - Posterior reversible encephalopathy syndrome [Recovered/Resolved]
